FAERS Safety Report 19381874 (Version 2)
Quarter: 2023Q2

REPORT INFORMATION
  Report Type: Report from Study
  Country: FR (occurrence: FR)
  Receive Date: 20210607
  Receipt Date: 20230410
  Transmission Date: 20230721
  Serious: Yes (Other)
  Sender: FDA-Public Use
  Company Number: FR-TAKEDA-2021TUS034389

PATIENT
  Age: 32 Year
  Sex: Male

DRUGS (12)
  1. TEDUGLUTIDE [Suspect]
     Active Substance: TEDUGLUTIDE
     Indication: Short-bowel syndrome
     Dosage: 3.2 MILLIGRAM,(0.05MG/KG), QD
     Route: 042
     Dates: end: 20211209
  2. TEDUGLUTIDE [Suspect]
     Active Substance: TEDUGLUTIDE
     Indication: Short-bowel syndrome
     Dosage: 3.2 MILLIGRAM,(0.05MG/KG), QD
     Route: 042
     Dates: end: 20211209
  3. TEDUGLUTIDE [Suspect]
     Active Substance: TEDUGLUTIDE
     Indication: Short-bowel syndrome
     Dosage: 3.2 MILLIGRAM,(0.05MG/KG), QD
     Route: 042
     Dates: end: 20211209
  4. TEDUGLUTIDE [Suspect]
     Active Substance: TEDUGLUTIDE
     Indication: Short-bowel syndrome
     Dosage: 3.2 MILLIGRAM,(0.05MG/KG), QD
     Route: 042
     Dates: end: 20211209
  5. VITAMIN B12 [Concomitant]
     Active Substance: CYANOCOBALAMIN
     Indication: Vitamin supplementation
     Dosage: 1.0 MILLIGRAM, 1/WEEK
     Route: 048
     Dates: start: 2020
  6. CREON [Concomitant]
     Active Substance: PANCRELIPASE AMYLASE\PANCRELIPASE LIPASE\PANCRELIPASE PROTEASE
     Indication: Short-bowel syndrome
     Dosage: 50000 INTERNATIONAL UNIT, TID
     Route: 048
     Dates: start: 202104
  7. ASCORBIC ACID [Concomitant]
     Active Substance: ASCORBIC ACID
     Indication: Vitamin supplementation
     Dosage: 500 MILLIGRAM, QD
     Route: 048
     Dates: start: 202104
  8. CHOLECALCIFEROL [Concomitant]
     Active Substance: CHOLECALCIFEROL
     Indication: Vitamin supplementation
     Dosage: 80000 INTERNATIONAL UNIT, 1/WEEK
     Route: 048
     Dates: start: 202104
  9. ARAVA [Concomitant]
     Active Substance: LEFLUNOMIDE
     Indication: Spondylitis
     Dosage: 20.00 MILLIGRAM
     Route: 048
     Dates: start: 20221104
  10. TALTZ [Concomitant]
     Active Substance: IXEKIZUMAB
     Indication: Spondylitis
     Dosage: 80.00 MILLIGRAM
     Route: 042
     Dates: start: 20221104
  11. AMLODIPINE [Concomitant]
     Active Substance: AMLODIPINE BESYLATE
     Indication: Hypertension
     Dosage: UNK UNK, QD
     Route: 048
     Dates: start: 2022
  12. METHOTREXATE [Concomitant]
     Active Substance: METHOTREXATE
     Indication: Spondylitis
     Dosage: UNK
     Route: 048
     Dates: start: 202112, end: 202112

REACTIONS (5)
  - Nephrolithiasis [Not Recovered/Not Resolved]
  - Barrett^s oesophagus [Not Recovered/Not Resolved]
  - Renal colic [Not Recovered/Not Resolved]
  - Rheumatic disorder [Recovered/Resolved]
  - Spondylitis [Not Recovered/Not Resolved]

NARRATIVE: CASE EVENT DATE: 20210101
